FAERS Safety Report 5464874-8 (Version None)
Quarter: 2007Q3

REPORT INFORMATION
  Report Type: 
  Country: None (occurrence: None)
  Receive Date: 20070921
  Receipt Date: 20070911
  Transmission Date: 20080115
  Serious: Yes (Other)
  Sender: FDA-Public Use
  Company Number: US-PFIZER INC-2007076359

PATIENT
  Sex: Female
  Weight: 103 kg

DRUGS (9)
  1. GABAPENTIN [Suspect]
     Indication: DIABETIC NEUROPATHY
     Route: 048
  2. METFORMIN [Concomitant]
     Indication: DIABETES MELLITUS
  3. GLIPIZIDE [Concomitant]
     Indication: DIABETES MELLITUS
  4. LEVOTHYROXINE SODIUM [Concomitant]
  5. LISINOPRIL [Concomitant]
  6. FISH OIL [Concomitant]
  7. CALCIUM [Concomitant]
  8. CALCIUM MAGNESIUM ZINC [Concomitant]
  9. POTASSIUM CHLORIDE [Concomitant]

REACTIONS (1)
  - LYMPHOMA [None]
